FAERS Safety Report 4268611-4 (Version None)
Quarter: 2004Q1

REPORT INFORMATION
  Report Type: 
  Country: None (occurrence: None)
  Receive Date: 20040109
  Receipt Date: 20040109
  Transmission Date: 20041129
  Serious: Yes (Life-Threatening, Hospitalization)
  Sender: FDA-Public Use
  Company Number: None

PATIENT
  Sex: Female
  Weight: 52.7 kg

DRUGS (16)
  1. PACLITAXEL [Suspect]
     Indication: OVARIAN CANCER
     Dosage: 174MG/M2 FORA A DOSE OF 300-315MG EVERY 3 WEEKS VIA PORT-A-CATH
     Dates: start: 20031001
  2. PACLITAXEL [Suspect]
     Indication: OVARIAN CANCER
     Dosage: 174MG/M2 FORA A DOSE OF 300-315MG EVERY 3 WEEKS VIA PORT-A-CATH
     Dates: start: 20031022
  3. PACLITAXEL [Suspect]
     Indication: OVARIAN CANCER
     Dosage: 174MG/M2 FORA A DOSE OF 300-315MG EVERY 3 WEEKS VIA PORT-A-CATH
     Dates: start: 20031112
  4. PACLITAXEL [Suspect]
     Indication: OVARIAN CANCER
     Dosage: 174MG/M2 FORA A DOSE OF 300-315MG EVERY 3 WEEKS VIA PORT-A-CATH
     Dates: start: 20031203
  5. CARBOPLATIN [Suspect]
     Indication: OVARIAN CANCER
     Dosage: AUC 5 FOR A DOSE OF 540 MG EVERY 3 WEEKS VIA PORT-A-CATH
     Dates: start: 20031001
  6. CARBOPLATIN [Suspect]
     Indication: OVARIAN CANCER
     Dosage: AUC 5 FOR A DOSE OF 540 MG EVERY 3 WEEKS VIA PORT-A-CATH
     Dates: start: 20031022
  7. CARBOPLATIN [Suspect]
     Indication: OVARIAN CANCER
     Dosage: AUC 5 FOR A DOSE OF 540 MG EVERY 3 WEEKS VIA PORT-A-CATH
     Dates: start: 20031112
  8. CARBOPLATIN [Suspect]
     Indication: OVARIAN CANCER
     Dosage: AUC 5 FOR A DOSE OF 540 MG EVERY 3 WEEKS VIA PORT-A-CATH
     Dates: start: 20031203
  9. DOXORUBICIN HCL [Suspect]
     Indication: OVARIAN CANCER
     Dosage: 30MG/M2 FOR A DOSE OF 52-54MG EVERY 6 WEEKS VIA PORT-A-CATH
     Dates: start: 20031001
  10. DOXORUBICIN HCL [Suspect]
     Indication: OVARIAN CANCER
     Dosage: 30MG/M2 FOR A DOSE OF 52-54MG EVERY 6 WEEKS VIA PORT-A-CATH
     Dates: start: 20031112
  11. METOPROLOL [Concomitant]
  12. MARINOL [Concomitant]
  13. METOCLOPRAMIDE [Concomitant]
  14. OXYCODONE HCL [Concomitant]
  15. POTASSIUM SUPPLEMENT [Concomitant]
  16. MAGNESIUM SUPPLEMENT [Concomitant]

REACTIONS (4)
  - EMPYEMA DRAINAGE [None]
  - FISTULA [None]
  - PLEURAL EFFUSION [None]
  - PNEUMOTHORAX [None]
